FAERS Safety Report 24617847 (Version 2)
Quarter: 2025Q2

REPORT INFORMATION
  Report Type: Report from Study
  Country: JP (occurrence: JP)
  Receive Date: 20241114
  Receipt Date: 20250429
  Transmission Date: 20250717
  Serious: Yes (Hospitalization, Other)
  Sender: JOHNSON AND JOHNSON
  Company Number: JP-JNJFOC-20241128002

PATIENT

DRUGS (8)
  1. STELARA [Suspect]
     Active Substance: USTEKINUMAB
     Indication: Crohn^s disease
     Route: 058
     Dates: end: 2022
  2. STELARA [Suspect]
     Active Substance: USTEKINUMAB
     Route: 040
     Dates: start: 2017
  3. STELARA [Suspect]
     Active Substance: USTEKINUMAB
     Route: 058
  4. REMICADE [Suspect]
     Active Substance: INFLIXIMAB
     Indication: Crohn^s disease
     Route: 041
  5. ADALIMUMAB [Suspect]
     Active Substance: ADALIMUMAB
     Indication: Crohn^s disease
     Route: 065
  6. AZATHIOPRINE [Concomitant]
     Active Substance: AZATHIOPRINE
     Indication: Product used for unknown indication
     Route: 065
  7. MERCAPTOPURINE [Concomitant]
     Active Substance: MERCAPTOPURINE
  8. TACROLIMUS [Concomitant]
     Active Substance: TACROLIMUS

REACTIONS (65)
  - Clostridium difficile colitis [Unknown]
  - Pneumonia bacterial [Unknown]
  - Urticaria [Unknown]
  - Myalgia [Unknown]
  - Device related infection [Unknown]
  - Anaemia [Unknown]
  - Fatty acid deficiency [Unknown]
  - Seizure [Unknown]
  - Hypokalaemia [Unknown]
  - Infusion related reaction [Recovered/Resolved]
  - Fracture [Unknown]
  - Flushing [Unknown]
  - Oral herpes [Unknown]
  - Parotitis [Unknown]
  - Helicobacter infection [Unknown]
  - Cystitis [Unknown]
  - Erythema infectiosum [Unknown]
  - Rash [Unknown]
  - Tinnitus [Unknown]
  - Decreased appetite [Unknown]
  - Rhinitis [Unknown]
  - Streptococcal infection [Unknown]
  - Hordeolum [Unknown]
  - Dermatitis atopic [Unknown]
  - Erythema nodosum [Unknown]
  - Erythema [Unknown]
  - Eczema [Unknown]
  - Obstructive sleep apnoea syndrome [Unknown]
  - Hypozincaemia [Unknown]
  - Vitamin B12 deficiency [Unknown]
  - Orthostatic intolerance [Unknown]
  - Dysmenorrhoea [Unknown]
  - Gastrooesophageal reflux disease [Unknown]
  - Eosinophilic oesophagitis [Unknown]
  - Short stature [Unknown]
  - Chronic recurrent multifocal osteomyelitis [Unknown]
  - Hepatic steatosis [Unknown]
  - Osteoporosis [Unknown]
  - Blood creatinine increased [Unknown]
  - Eye pain [Unknown]
  - Chest discomfort [Unknown]
  - Hypertension [Unknown]
  - Influenza [Unknown]
  - Pyrexia [Unknown]
  - Oropharyngeal pain [Unknown]
  - Fatigue [Unknown]
  - Headache [Unknown]
  - Arthralgia [Unknown]
  - Depression [Recovered/Resolved]
  - Sinusitis [Unknown]
  - Herpes zoster [Unknown]
  - Pruritus [Unknown]
  - Gastroenteritis [Unknown]
  - Upper respiratory tract infection [Unknown]
  - Paradoxical psoriasis [Unknown]
  - Abdominal pain [Unknown]
  - Constipation [Unknown]
  - Diarrhoea [Unknown]
  - Nausea [Unknown]
  - Vomiting [Unknown]
  - Stomatitis [Unknown]
  - Abdominal distension [Unknown]
  - COVID-19 [Unknown]
  - Drug ineffective [Unknown]
  - Off label use [Unknown]
